FAERS Safety Report 24745815 (Version 2)
Quarter: 2025Q1

REPORT INFORMATION
  Report Type: Report from Study
  Country: US (occurrence: US)
  Receive Date: 20241218
  Receipt Date: 20250113
  Transmission Date: 20250409
  Serious: No
  Sender: ABBVIE
  Company Number: US-ABBVIE-6040589

PATIENT
  Age: 69 Year
  Sex: Female

DRUGS (1)
  1. RESTASIS [Suspect]
     Active Substance: CYCLOSPORINE
     Indication: Dry eye
     Route: 047

REACTIONS (5)
  - Medication error [Recovered/Resolved]
  - Fear [Not Recovered/Not Resolved]
  - Cataract [Not Recovered/Not Resolved]
  - Unevaluable event [Not Recovered/Not Resolved]
  - Psychiatric symptom [Unknown]
